FAERS Safety Report 23331280 (Version 2)
Quarter: 2024Q1

REPORT INFORMATION
  Report Type: Spontaneous
  Country: FR (occurrence: None)
  Receive Date: 20231222
  Receipt Date: 20240119
  Transmission Date: 20240409
  Serious: Yes (Hospitalization)
  Sender: FDA-Public Use
  Company Number: FR-ROCHE-3477874

PATIENT
  Age: 60 Year
  Sex: Female

DRUGS (1)
  1. GLOFITAMAB [Suspect]
     Active Substance: GLOFITAMAB
     Indication: B-cell lymphoma
     Route: 065
     Dates: start: 2021

REACTIONS (4)
  - Inflammation [Unknown]
  - Pyrexia [Unknown]
  - Lung neoplasm [Unknown]
  - Pneumocystis jirovecii pneumonia [Unknown]
